FAERS Safety Report 12337238 (Version 2)
Quarter: 2016Q2

REPORT INFORMATION
  Report Type: Report from Study
  Country: US (occurrence: US)
  Receive Date: 20160505
  Receipt Date: 20160525
  Transmission Date: 20160815
  Serious: Yes (Other)
  Sender: FDA-Public Use
  Company Number: PHEH2016US011012

PATIENT
  Age: 45 Year
  Sex: Female
  Weight: 89.8 kg

DRUGS (6)
  1. DEPO-PROVERA [Concomitant]
     Active Substance: MEDROXYPROGESTERONE ACETATE
     Indication: PRODUCT USED FOR UNKNOWN INDICATION
     Dosage: UNK
     Route: 065
  2. CLOBAZAM [Concomitant]
     Active Substance: CLOBAZAM
     Indication: SEIZURE
     Dosage: 20 MG, QD
     Route: 048
     Dates: start: 20160223
  3. AFINITOR [Suspect]
     Active Substance: EVEROLIMUS
     Dosage: 5 MG, QD
     Route: 048
     Dates: start: 20160415
  4. APITON [Concomitant]
     Indication: PRODUCT USED FOR UNKNOWN INDICATION
     Dosage: 400 MG, QD
     Route: 065
  5. AFINITOR [Suspect]
     Active Substance: EVEROLIMUS
     Indication: ANGIOMYOLIPOMA
     Dosage: 5 MG, QD
     Route: 048
     Dates: start: 20160323
  6. TROKENDI [Concomitant]
     Active Substance: TOPIRAMATE
     Indication: SEIZURE
     Dosage: 100 MG, QD
     Route: 048
     Dates: start: 20160223

REACTIONS (14)
  - Sensory disturbance [Unknown]
  - Nausea [Unknown]
  - Seizure [Unknown]
  - Automatism [Unknown]
  - Dyskinesia [Unknown]
  - Emotional distress [Unknown]
  - Muscle spasms [Unknown]
  - Depression [Unknown]
  - Emotional disorder [Unknown]
  - Diarrhoea [Unknown]
  - Irritability [Unknown]
  - Muscle rigidity [Unknown]
  - Vertigo [Unknown]
  - Sleep disorder [Unknown]

NARRATIVE: CASE EVENT DATE: 20160415
